FAERS Safety Report 17614043 (Version 2)
Quarter: 2020Q2

REPORT INFORMATION
  Report Type: Spontaneous
  Country: US (occurrence: US)
  Receive Date: 20200402
  Receipt Date: 20200409
  Transmission Date: 20200713
  Serious: Yes (Other)
  Sender: FDA-Public Use
  Company Number: US-HBP-2019US019811

PATIENT
  Age: 72 Year
  Sex: Male

DRUGS (3)
  1. TARGRETIN [Concomitant]
     Active Substance: BEXAROTENE
  2. BRENTUXIMAB [Suspect]
     Active Substance: BRENTUXIMAB VEDOTIN
  3. VALCHLOR [Suspect]
     Active Substance: MECHLORETHAMINE
     Indication: CUTANEOUS T-CELL LYMPHOMA
     Dosage: THIN FILM, QD
     Route: 061
     Dates: end: 20200324

REACTIONS (7)
  - Recurrent cancer [Recovered/Resolved]
  - Hypersomnia [Unknown]
  - Cognitive disorder [Unknown]
  - Asthenia [Unknown]
  - Cancer fatigue [Unknown]
  - Confusional state [Unknown]
  - Platelet count decreased [Recovered/Resolved]

NARRATIVE: CASE EVENT DATE: 202003
